FAERS Safety Report 5326073-X (Version None)
Quarter: 2007Q2

REPORT INFORMATION
  Report Type: 
  Country: None (occurrence: None)
  Receive Date: 20070516
  Receipt Date: 20070503
  Transmission Date: 20071010
  Serious: Yes (Hospitalization)
  Sender: FDA-Public Use
  Company Number: FR-AMGEN-US212777

PATIENT
  Sex: Female

DRUGS (5)
  1. ENBREL [Suspect]
     Indication: RHEUMATOID ARTHRITIS
     Route: 058
     Dates: start: 20040701, end: 20070201
  2. CORTANCYL [Suspect]
     Indication: RHEUMATOID ARTHRITIS
     Route: 048
     Dates: start: 20070201
  3. CORTANCYL [Suspect]
     Route: 048
     Dates: end: 20070201
  4. LEVOTHYROXINE SODIUM [Concomitant]
  5. LOXEN [Concomitant]
     Dosage: 40 MG TOTAL DAILY
     Route: 048

REACTIONS (11)
  - ACUTE RESPIRATORY DISTRESS SYNDROME [None]
  - BALANCE DISORDER [None]
  - CONDITION AGGRAVATED [None]
  - FALL [None]
  - INTENTION TREMOR [None]
  - MUSCULAR WEAKNESS [None]
  - NYSTAGMUS [None]
  - PNEUMOCOCCAL SEPSIS [None]
  - PNEUMONIA PNEUMOCOCCAL [None]
  - RHEUMATOID ARTHRITIS [None]
  - RIB FRACTURE [None]
